FAERS Safety Report 14476125 (Version 2)
Quarter: 2018Q1

REPORT INFORMATION
  Report Type: Spontaneous
  Country: US (occurrence: US)
  Receive Date: 20180201
  Receipt Date: 20180326
  Transmission Date: 20180509
  Serious: No
  Sender: FDA-Public Use
  Company Number: US-009507513-1801USA014165

PATIENT
  Sex: Female

DRUGS (2)
  1. BELSOMRA [Suspect]
     Active Substance: SUVOREXANT
     Indication: INSOMNIA
     Dosage: AS NEEDED
     Route: 048
  2. BELSOMRA [Suspect]
     Active Substance: SUVOREXANT
     Indication: INSOMNIA
     Dosage: AS NEEDED
     Route: 048

REACTIONS (7)
  - Nasopharyngitis [Not Recovered/Not Resolved]
  - Inability to afford medication [Unknown]
  - Drug dose omission [Unknown]
  - Influenza [Not Recovered/Not Resolved]
  - No adverse event [Unknown]
  - Epistaxis [Unknown]
  - Product blister packaging issue [Unknown]
